FAERS Safety Report 8060571-3 (Version None)
Quarter: 2012Q1

REPORT INFORMATION
  Report Type: 
  Country: None (occurrence: None)
  Receive Date: 20120120
  Receipt Date: 20120117
  Transmission Date: 20120608
  Serious: Yes (Death, Hospitalization, Other)
  Sender: FDA-Public Use
  Company Number: PHHY2011NL099837

PATIENT
  Sex: Male
  Weight: 79.4 kg

DRUGS (6)
  1. FENTANYL [Concomitant]
     Route: 062
  2. ZOMETA [Suspect]
     Indication: LUNG CANCER METASTATIC
     Dosage: 4 MG/5ML ONCE EVERY 21 DAYS
     Dates: start: 20111110
  3. OXYCODONE HCL [Concomitant]
     Dosage: 5 MG, PRN
     Route: 048
  4. FUROSEMIDE [Concomitant]
     Dosage: 20 MG, UNK
     Route: 048
  5. HALDOL [Concomitant]
     Dosage: 1 MG, QD
     Route: 048
  6. DEXAMETHASONE TAB [Concomitant]
     Dosage: 1 MG, BID
     Route: 048

REACTIONS (4)
  - ASTHENIA [None]
  - DEATH [None]
  - PAIN [None]
  - TERMINAL STATE [None]
